FAERS Safety Report 20775341 (Version 1)
Quarter: 2022Q2

REPORT INFORMATION
  Report Type: Spontaneous
  Country: US (occurrence: None)
  Receive Date: 20220502
  Receipt Date: 20220502
  Transmission Date: 20220721
  Serious: Yes (Other)
  Sender: FDA-Public Use
  Company Number: None

PATIENT
  Age: 50 Year
  Sex: Female
  Weight: 108.9 kg

DRUGS (4)
  1. MONISTAT [Suspect]
     Active Substance: MICONAZOLE NITRATE
     Indication: Fungal infection
  2. METHOTREXATE [Concomitant]
     Active Substance: METHOTREXATE
  3. HYDROTHOROQUINE [Concomitant]
  4. FOLIC ACID [Concomitant]
     Active Substance: FOLIC ACID

REACTIONS (2)
  - Vulvovaginal burning sensation [None]
  - Vaginal haemorrhage [None]

NARRATIVE: CASE EVENT DATE: 20220501
